FAERS Safety Report 23549801 (Version 1)
Quarter: 2024Q1

REPORT INFORMATION
  Report Type: Spontaneous
  Country: GB (occurrence: GB)
  Receive Date: 20240221
  Receipt Date: 20240221
  Transmission Date: 20240410
  Serious: Yes (Other)
  Sender: FDA-Public Use
  Company Number: None

PATIENT

DRUGS (1)
  1. PREDNISOLONE [Suspect]
     Active Substance: PREDNISOLONE
     Dosage: 40 MG, QD (TABLET, FOR 5 DAYS.)

REACTIONS (9)
  - Heart rate increased [Unknown]
  - Extrasystoles [Unknown]
  - Back pain [Unknown]
  - Peripheral swelling [Unknown]
  - Pain in extremity [Unknown]
  - Pharyngeal erythema [Unknown]
  - Oropharyngeal pain [Unknown]
  - Hallucination [Unknown]
  - Insomnia [Unknown]
